FAERS Safety Report 14484216 (Version 3)
Quarter: 2019Q1

REPORT INFORMATION
  Report Type: Report from Study
  Country: US (occurrence: US)
  Receive Date: 20180205
  Receipt Date: 20190325
  Transmission Date: 20190417
  Serious: Yes (Death, Other)
  Sender: FDA-Public Use
  Company Number: US-ROCHE-2065450

PATIENT

DRUGS (2)
  1. RITUXIMAB. [Suspect]
     Active Substance: RITUXIMAB
     Indication: CHRONIC LYMPHOCYTIC LEUKAEMIA
     Dosage: WEEKLY DURING THE FIRST 4 WEEKS [CYCLE 1], THEN MONTHLY FOR CYCLES 2-6)
     Route: 042
  2. IBRUTINIB [Suspect]
     Active Substance: IBRUTINIB
     Indication: CHRONIC LYMPHOCYTIC LEUKAEMIA
     Route: 048

REACTIONS (65)
  - Malignant melanoma [Unknown]
  - Upper respiratory tract infection [Unknown]
  - Febrile neutropenia [Unknown]
  - Respiratory failure [Unknown]
  - Cystitis [Unknown]
  - Sepsis [Unknown]
  - Infestation [Unknown]
  - Depression [Unknown]
  - Dizziness [Unknown]
  - Nausea [Unknown]
  - Otitis media [Unknown]
  - Vomiting [Unknown]
  - Renal disorder [Unknown]
  - Blood disorder [Unknown]
  - Chronic myeloid leukaemia [Unknown]
  - Anaemia [Unknown]
  - Hallucination [Unknown]
  - White blood cell count decreased [Unknown]
  - Neoplasm malignant [Unknown]
  - Urinary tract disorder [Unknown]
  - Lung infection [Unknown]
  - Platelet count decreased [Unknown]
  - Dyspnoea [Unknown]
  - Hypokalaemia [Unknown]
  - Polyp [Unknown]
  - Colorectal cancer [Unknown]
  - Atrial fibrillation [Unknown]
  - Infection [Unknown]
  - Enterocolitis infectious [Unknown]
  - Oral pain [Unknown]
  - Lymphatic disorder [Unknown]
  - Pneumonia [Fatal]
  - Sarcoma [Unknown]
  - Diarrhoea [Unknown]
  - Gastrointestinal disorder [Unknown]
  - Wound infection [Unknown]
  - Headache [Unknown]
  - Cardiac disorder [Unknown]
  - Back pain [Unknown]
  - Chronic kidney disease [Unknown]
  - Obstruction gastric [Unknown]
  - Pericardial effusion [Unknown]
  - Sinusitis [Unknown]
  - Benign neoplasm [Unknown]
  - Hypertension [Unknown]
  - Hyperglycaemia [Unknown]
  - Skin infection [Unknown]
  - Cataract [Unknown]
  - Kidney infection [Unknown]
  - Pleural effusion [Unknown]
  - Pleuritic pain [Unknown]
  - Mediastinal disorder [Unknown]
  - Skin disorder [Unknown]
  - Liposarcoma [Unknown]
  - Neutropenia [Unknown]
  - Leukocytosis [Unknown]
  - Angiopathy [Unknown]
  - Bone pain [Unknown]
  - Pyrexia [Unknown]
  - Hyponatraemia [Unknown]
  - Dermatitis acneiform [Unknown]
  - Seizure [Unknown]
  - Respiratory disorder [Unknown]
  - Ill-defined disorder [Unknown]
  - Cyst [Unknown]
